FAERS Safety Report 6308335-2 (Version None)
Quarter: 2009Q3

REPORT INFORMATION
  Report Type: 
  Country: None (occurrence: None)
  Receive Date: 20090813
  Receipt Date: 20090805
  Transmission Date: 20100115
  Serious: Yes (Hospitalization)
  Sender: FDA-Public Use
  Company Number: GB-ABBOTT-09P-167-0583384-00

PATIENT
  Sex: Male
  Weight: 132 kg

DRUGS (8)
  1. HUMIRA [Suspect]
     Indication: PSORIATIC ARTHROPATHY
     Route: 058
     Dates: start: 20090605
  2. CO-DYDRAMOL [Concomitant]
     Indication: DRUG USE FOR UNKNOWN INDICATION
  3. FOLIC ACID [Concomitant]
     Indication: VITAMIN SUPPLEMENTATION
  4. MORICOL [Concomitant]
     Indication: DRUG USE FOR UNKNOWN INDICATION
  5. IRBESARTAN [Concomitant]
     Indication: DRUG USE FOR UNKNOWN INDICATION
  6. METHOTREXATE [Concomitant]
     Indication: PSORIATIC ARTHROPATHY
     Route: 058
  7. FENOFIBRATE [Concomitant]
     Indication: BLOOD PRESSURE INCREASED
     Route: 048
  8. OMEPRAZOLE [Concomitant]
     Indication: BLOOD CHOLESTEROL INCREASED
     Route: 048

REACTIONS (1)
  - PANCREATITIS ACUTE [None]
